FAERS Safety Report 5522238-2 (Version None)
Quarter: 2007Q4

REPORT INFORMATION
  Report Type: 
  Country: None (occurrence: None)
  Receive Date: 20071120
  Receipt Date: 20071115
  Transmission Date: 20080405
  Serious: Yes (Life-Threatening)
  Sender: FDA-Public Use
  Company Number: ES-JNJFOC-20071105420

PATIENT
  Age: 77 Year
  Sex: Female

DRUGS (1)
  1. TAVANIC [Suspect]
     Indication: RESPIRATORY TRACT INFECTION
     Route: 048

REACTIONS (2)
  - DIARRHOEA HAEMORRHAGIC [None]
  - IDIOPATHIC THROMBOCYTOPENIC PURPURA [None]
